FAERS Safety Report 8128144-1 (Version None)
Quarter: 2012Q1

REPORT INFORMATION
  Report Type: 
  Country: None (occurrence: None)
  Receive Date: 20120210
  Receipt Date: 20120130
  Transmission Date: 20120608
  Serious: Yes (Other)
  Sender: FDA-Public Use
  Company Number: US-PFIZER INC-2011267926

PATIENT
  Age: 72 Year
  Sex: Male
  Weight: 83 kg

DRUGS (25)
  1. POLYGAM S/D [Concomitant]
     Dosage: 60 GMS, Q MONTH
     Route: 042
  2. MELATONIN [Concomitant]
     Dosage: 3 MG 1 TAB, HS
     Route: 048
  3. LOVAZA [Concomitant]
     Dosage: 2 CAPS, QD
     Route: 048
  4. SYNTHROID [Concomitant]
     Dosage: 25 MCG, 1 TAB QD
     Route: 048
  5. SILYMARIN [Concomitant]
     Dosage: 900 MG 1 CAPSULE QD
  6. COENZYME Q10 [Concomitant]
     Dosage: 50 MG CAPSULE, 1 CAPSULE QD
     Route: 048
  7. MULTI-VITAMINS [Concomitant]
     Dosage: 3 TABS QD
     Route: 048
  8. REVLIMID [Suspect]
     Indication: MANTLE CELL LYMPHOMA
     Dosage: UNK
     Dates: start: 20080101, end: 20100920
  9. CLONAZEPAM [Concomitant]
     Dosage: 1 MG TAB, 1 TAB WITH BREAKFAST, 2 TABS WITH DINNER
     Route: 048
  10. MAGNESIUM [Concomitant]
     Dosage: 200 MG, 5 CAPSULES QD
     Route: 048
  11. VITAMIN B COMPLEX CAP [Concomitant]
     Dosage: 1 UNK, 1X/DAY
     Route: 048
  12. IPRATROPIUM [Concomitant]
     Dosage: AEROSOL 1-2 SPRAYS EACH NOSTRIL, AS NEEDED
  13. FERROUS GLUCONATE [Concomitant]
     Dosage: 240 MG, 1 TAB TID
     Route: 048
  14. PAXIL [Concomitant]
     Dosage: 30 MG, 1 TAB QD
     Route: 048
  15. RITUXIMAB [Suspect]
     Indication: MANTLE CELL LYMPHOMA
     Dosage: 375 MG/M2, CYCLIC
     Route: 042
     Dates: start: 20070111, end: 20071018
  16. NIACIN [Concomitant]
     Dosage: 500 MG, 7 TABS QD
     Route: 048
  17. POTASSIUM [Concomitant]
     Dosage: 99 MG, 1 TAB BID
     Route: 048
  18. CIMETIDINE [Concomitant]
     Dosage: 200MG TABS, 2 TABS BID
     Route: 048
  19. GREEN TEA EXTRACT [Concomitant]
     Dosage: GREEN TEA LEAF EXTRACT 325 MG, 3 CAPSULES BID
     Route: 048
  20. TORISEL [Suspect]
     Indication: MANTLE CELL LYMPHOMA
     Dosage: 25 MG, DAYS 1,8, 15 AND 22
     Route: 042
     Dates: start: 20070111, end: 20071206
  21. CRANBERRY [Concomitant]
     Dosage: CRANBERRY EXTRACT, 350 MG CAPS QD, 700 MG TOTAL
     Route: 048
  22. LUTEIN [Concomitant]
     Dosage: CAPSULE 10 MG, 1 CAPSULE BID
     Route: 048
  23. ASPIRIN [Concomitant]
     Dosage: LOW DOSE, 81 MG, 3 TABS, QD
     Route: 048
  24. VITAMIN D [Concomitant]
  25. VITAMIN E [Concomitant]
     Dosage: 400 MG, 1 CAPSULE QD
     Route: 048

REACTIONS (2)
  - NEOPLASM MALIGNANT [None]
  - MYELODYSPLASTIC SYNDROME [None]
